FAERS Safety Report 8480914-6 (Version None)
Quarter: 2012Q3

REPORT INFORMATION
  Report Type: 
  Country: None (occurrence: None)
  Receive Date: 20120702
  Receipt Date: 20120620
  Transmission Date: 20120928
  Serious: Yes (Hospitalization)
  Sender: FDA-Public Use
  Company Number: US-ELI_LILLY_AND_COMPANY-US201201004860

PATIENT
  Sex: Female

DRUGS (5)
  1. FORTEO [Suspect]
     Dosage: 20 UG, QOD
     Dates: start: 20120101
  2. ANABOLIC STEROIDS [Concomitant]
     Dosage: 3 DF, UNK
     Dates: start: 20120201
  3. OXYCODONE HCL [Concomitant]
     Indication: PAIN
     Dosage: UNK
  4. FORTEO [Suspect]
     Indication: OSTEOPOROSIS
     Dosage: 20 UG, QD
     Dates: start: 20120101
  5. FORTEO [Suspect]
     Dosage: 20 UG, QD
     Dates: start: 20120101, end: 20120501

REACTIONS (23)
  - BLOOD TEST ABNORMAL [None]
  - TREMOR [None]
  - HYPERSENSITIVITY [None]
  - DECREASED ACTIVITY [None]
  - MUSCLE FATIGUE [None]
  - SLEEP DISORDER [None]
  - MALAISE [None]
  - PAIN [None]
  - COUGH [None]
  - DECREASED APPETITE [None]
  - SPEECH DISORDER [None]
  - GAIT DISTURBANCE [None]
  - VISION BLURRED [None]
  - ADVERSE EVENT [None]
  - HEADACHE [None]
  - PAIN IN EXTREMITY [None]
  - BALANCE DISORDER [None]
  - DRUG PRESCRIBING ERROR [None]
  - CEREBROVASCULAR ACCIDENT [None]
  - MUSCLE TIGHTNESS [None]
  - FEAR [None]
  - VOMITING [None]
  - MUSCULAR WEAKNESS [None]
